FAERS Safety Report 20509846 (Version 5)
Quarter: 2022Q3

REPORT INFORMATION
  Report Type: Report from Study
  Country: AU (occurrence: AU)
  Receive Date: 20220224
  Receipt Date: 20220625
  Transmission Date: 20221027
  Serious: Yes (Hospitalization)
  Sender: FDA-Public Use
  Company Number: AU-NOVARTISPH-NVSC2022AU040852

PATIENT
  Sex: Female

DRUGS (1)
  1. KESIMPTA [Suspect]
     Active Substance: OFATUMUMAB
     Indication: Relapsing-remitting multiple sclerosis
     Dosage: 20 MG, QMO (EVERY 30 DAYS)
     Route: 058
     Dates: start: 20210616

REACTIONS (6)
  - Influenza [Unknown]
  - COVID-19 [Recovered/Resolved]
  - Gastrointestinal disorder [Unknown]
  - Rash [Unknown]
  - Immune system disorder [Unknown]
  - Product supply issue [Unknown]
